FAERS Safety Report 17161132 (Version 2)
Quarter: 2020Q1

REPORT INFORMATION
  Report Type: Report from Study
  Country: GB (occurrence: GB)
  Receive Date: 20191216
  Receipt Date: 20200109
  Transmission Date: 20200409
  Serious: Yes (Hospitalization)
  Sender: FDA-Public Use
  Company Number: GB-SAMSUNG BIOEPIS-SB-2019-32839

PATIENT
  Sex: Male

DRUGS (3)
  1. IMRALDI [Suspect]
     Active Substance: ADALIMUMAB
     Indication: PSORIASIS
     Dosage: WEEK 0, INDUCTION DOSE
     Route: 058
     Dates: start: 20190903
  2. IMRALDI [Suspect]
     Active Substance: ADALIMUMAB
     Route: 058
  3. IMRALDI [Suspect]
     Active Substance: ADALIMUMAB
     Indication: PSORIASIS
     Dosage: WEEK 1, INDUCTION DOSE
     Route: 058
     Dates: start: 20190903

REACTIONS (3)
  - Hypersensitivity [Unknown]
  - Salivary gland enlargement [Unknown]
  - Sialoadenitis [Unknown]
